FAERS Safety Report 10577858 (Version 3)
Quarter: 2016Q1

REPORT INFORMATION
  Report Type: Report from Study
  Country: VE (occurrence: VE)
  Receive Date: 20141111
  Receipt Date: 20160122
  Transmission Date: 20160525
  Serious: Yes (Other)
  Sender: FDA-Public Use
  Company Number: VE-ABBVIE-14K-178-1306227-00

PATIENT
  Age: 59 Year
  Sex: Female

DRUGS (2)
  1. HUMIRA [Suspect]
     Active Substance: ADALIMUMAB
     Indication: CROHN^S DISEASE
     Route: 058
     Dates: start: 2014
  2. HUMIRA [Suspect]
     Active Substance: ADALIMUMAB
     Route: 058

REACTIONS (4)
  - Foot operation [Recovered/Resolved]
  - Asthma [Recovered/Resolved]
  - Rheumatic disorder [Recovered/Resolved]
  - Dyspnoea [Recovered/Resolved]

NARRATIVE: CASE EVENT DATE: 20141106
